FAERS Safety Report 6171959-X (Version None)
Quarter: 2009Q2

REPORT INFORMATION
  Report Type: 
  Country: None (occurrence: None)
  Receive Date: 20090424
  Receipt Date: 20090204
  Transmission Date: 20091009
  Serious: No
  Sender: FDA-Public Use
  Company Number: ALL1-2009-00286

PATIENT
  Age: 9 Year
  Sex: Male

DRUGS (3)
  1. VYVANSE [Suspect]
     Dosage: 20 MG, 1X/DAY:QD, ORAL; 40 MG, 1X/DAY:QD, ORAL;  60 MG, 1X/DAY:QD, ORAL
     Route: 048
     Dates: start: 20080501, end: 20080701
  2. VYVANSE [Suspect]
     Dosage: 20 MG, 1X/DAY:QD, ORAL; 40 MG, 1X/DAY:QD, ORAL;  60 MG, 1X/DAY:QD, ORAL
     Route: 048
     Dates: start: 20080701, end: 20080901
  3. VYVANSE [Suspect]
     Dosage: 20 MG, 1X/DAY:QD, ORAL; 40 MG, 1X/DAY:QD, ORAL;  60 MG, 1X/DAY:QD, ORAL
     Route: 048
     Dates: start: 20080901, end: 20090105

REACTIONS (1)
  - INSOMNIA [None]
